FAERS Safety Report 15322050 (Version 1)
Quarter: 2018Q4

REPORT INFORMATION
  Report Type: Spontaneous
  Country: FR (occurrence: FR)
  Receive Date: 20180827
  Receipt Date: 20180827
  Transmission Date: 20190204
  Serious: Yes (Hospitalization)
  Sender: FDA-Public Use
  Company Number: FR-PFIZER INC-2018337864

PATIENT
  Age: 17 Year
  Sex: Male
  Weight: 57 kg

DRUGS (8)
  1. SUFENTANIL MYLAN [Suspect]
     Active Substance: SUFENTANIL
     Indication: ANALGESIC THERAPY
     Dosage: 250 UG, 1X/DAY
     Route: 042
     Dates: start: 20180706, end: 20180714
  2. TRANXENE [Suspect]
     Active Substance: CLORAZEPATE DIPOTASSIUM
     Indication: AGITATION
     Dosage: 50 MG, 4X/DAY (EVERY 6 HOURS)
     Route: 042
     Dates: start: 20180709, end: 20180714
  3. AMOXICILLIN. [Concomitant]
     Active Substance: AMOXICILLIN
     Dosage: UNK
  4. DIPRIVAN [Suspect]
     Active Substance: PROPOFOL
     Indication: SEDATION
     Dosage: 200 MG, 1X/DAY
     Route: 042
     Dates: start: 20180711, end: 20180714
  5. SOLU-MEDROL [Suspect]
     Active Substance: METHYLPREDNISOLONE SODIUM SUCCINATE
     Indication: LARYNGOTRACHEAL OEDEMA
     Dosage: 40 MG, DAILY (EVERY 24 HOURS)
     Route: 042
     Dates: start: 20180711, end: 20180713
  6. GLUCOSE [Concomitant]
     Active Substance: DEXTROSE
     Dosage: UNK
  7. MIDAZOLAM [Suspect]
     Active Substance: MIDAZOLAM HYDROCHLORIDE
     Indication: SEDATION
     Dosage: 50 MG, 1X/DAY
     Route: 042
     Dates: start: 20180706, end: 20180711
  8. NOZINAN (LEVOMEPROMAZINE HYDROCHLORIDE) [Suspect]
     Active Substance: LEVOMEPROMAZINE HYDROCHLORIDE
     Indication: AGITATION
     Dosage: 25 MG, 3X/DAY (EVERY 8 HOURS)
     Route: 042
     Dates: start: 20180710, end: 20180714

REACTIONS (1)
  - Disorientation [Recovered/Resolved]

NARRATIVE: CASE EVENT DATE: 20180716
